FAERS Safety Report 16099060 (Version 1)
Quarter: 2019Q1

REPORT INFORMATION
  Report Type: Spontaneous
  Country: DE (occurrence: DE)
  Receive Date: 20190321
  Receipt Date: 20190321
  Transmission Date: 20190418
  Serious: Yes (Other)
  Sender: FDA-Public Use
  Company Number: DE-B.I. PHARMACEUTICALS,INC./RIDGEFIELD-2019-BI-011911

PATIENT
  Sex: Male

DRUGS (5)
  1. GILOTRIF [Suspect]
     Active Substance: AFATINIB
     Indication: LUNG ADENOCARCINOMA
     Route: 065
     Dates: start: 201401
  2. OSIMERTINIB. [Concomitant]
     Active Substance: OSIMERTINIB
     Indication: PRODUCT USED FOR UNKNOWN INDICATION
     Route: 065
  3. GILOTRIF [Suspect]
     Active Substance: AFATINIB
     Route: 065
     Dates: end: 201606
  4. AKNEMYCIN [Concomitant]
     Indication: PRODUCT USED FOR UNKNOWN INDICATION
     Route: 065
  5. DENOSUMAB [Concomitant]
     Active Substance: DENOSUMAB
     Indication: PRODUCT USED FOR UNKNOWN INDICATION
     Route: 065

REACTIONS (8)
  - Central nervous system lesion [Unknown]
  - Skin fissures [Unknown]
  - Mucosal dryness [Unknown]
  - Skin toxicity [Unknown]
  - Dry skin [Unknown]
  - Rash [Unknown]
  - Paronychia [Unknown]
  - Diarrhoea [Unknown]
